FAERS Safety Report 16620815 (Version 3)
Quarter: 2019Q4

REPORT INFORMATION
  Report Type: Report from Study
  Country: BR (occurrence: BR)
  Receive Date: 20190723
  Receipt Date: 20191129
  Transmission Date: 20200122
  Serious: Yes (Other)
  Sender: FDA-Public Use
  Company Number: PHHY2019BR169366

PATIENT
  Sex: Female

DRUGS (3)
  1. COSENTYX [Suspect]
     Active Substance: SECUKINUMAB
     Indication: PSORIATIC ARTHROPATHY
     Dosage: UNK
     Route: 065
     Dates: start: 20190320
  2. COSENTYX [Suspect]
     Active Substance: SECUKINUMAB
     Dosage: UNK
     Route: 065
     Dates: start: 20190710, end: 20190810
  3. COSENTYX [Suspect]
     Active Substance: SECUKINUMAB
     Dosage: UNK
     Route: 065
     Dates: start: 20190507

REACTIONS (7)
  - Arthralgia [Not Recovered/Not Resolved]
  - Psoriasis [Unknown]
  - Tuberculin test positive [Unknown]
  - Decreased immune responsiveness [Unknown]
  - Gait inability [Unknown]
  - Arthritis [Unknown]
  - Therapeutic product effect incomplete [Unknown]
